FAERS Safety Report 14764070 (Version 1)
Quarter: 2018Q2

REPORT INFORMATION
  Report Type: Spontaneous
  Country: IT (occurrence: IT)
  Receive Date: 20180416
  Receipt Date: 20180416
  Transmission Date: 20180711
  Serious: Yes (Other)
  Sender: FDA-Public Use
  Company Number: IT-ASTRAZENECA-2018SE45795

PATIENT
  Age: 19 Year
  Sex: Female

DRUGS (2)
  1. SEROQUEL [Suspect]
     Active Substance: QUETIAPINE FUMARATE
     Indication: DEPRESSION
     Dosage: 10.0DF ONCE/SINGLE ADMINISTRATION
     Route: 048
     Dates: start: 20171125, end: 20171125
  2. PROZAC [Concomitant]
     Active Substance: FLUOXETINE HYDROCHLORIDE
     Dosage: 3.0DF UNKNOWN

REACTIONS (3)
  - Syncope [Unknown]
  - Tachycardia [Unknown]
  - Drug abuse [Unknown]

NARRATIVE: CASE EVENT DATE: 20171125
